FAERS Safety Report 7112199-7 (Version None)
Quarter: 2010Q4

REPORT INFORMATION
  Report Type: 
  Country: None (occurrence: None)
  Receive Date: 20101119
  Receipt Date: 20100223
  Transmission Date: 20110411
  Serious: No
  Sender: FDA-Public Use
  Company Number: A0845946A

PATIENT
  Age: 79 Year
  Sex: Male

DRUGS (18)
  1. AVODART [Suspect]
     Dosage: 1CAP TWICE PER DAY
     Route: 048
     Dates: end: 20091101
  2. SIMVASTATIN [Concomitant]
  3. SENNOSIDE [Concomitant]
  4. DOCUSATE [Concomitant]
  5. ASPIRIN [Concomitant]
  6. METFORMIN HCL [Concomitant]
  7. UNKNOWN MEDICATION [Concomitant]
  8. LISINOPRIL [Concomitant]
  9. FLOMAX [Concomitant]
  10. RANITIDINE [Concomitant]
  11. MULTI-VITAMIN [Concomitant]
  12. CALCIUM [Concomitant]
  13. VITAMIN B3 [Concomitant]
  14. PUMPKIN SEED OIL [Concomitant]
  15. ASCORBIC ACID [Concomitant]
  16. DIETARY SUPPLEMENT [Concomitant]
  17. PHILLIPS LAXATIVE [Concomitant]
  18. TEMAZEPAM [Concomitant]

REACTIONS (2)
  - BREAST ENLARGEMENT [None]
  - DRUG INEFFECTIVE [None]
